FAERS Safety Report 21459816 (Version 1)
Quarter: 2022Q4

REPORT INFORMATION
  Report Type: Spontaneous
  Country: US (occurrence: JP)
  Receive Date: 20221014
  Receipt Date: 20221014
  Transmission Date: 20230113
  Serious: Yes (Other)
  Sender: FDA-Public Use
  Company Number: US-TAKEDA-2022TUS073939

PATIENT

DRUGS (1)
  1. LIALDA [Suspect]
     Active Substance: MESALAMINE
     Indication: Colitis ulcerative
     Dosage: UNK
     Route: 048

REACTIONS (6)
  - Hepatic function abnormal [Unknown]
  - Pneumonia [Unknown]
  - Drug intolerance [Unknown]
  - Pancreatitis [Unknown]
  - Tubulointerstitial nephritis [Unknown]
  - Pericarditis [Unknown]
